FAERS Safety Report 20423471 (Version 1)
Quarter: 2022Q1

REPORT INFORMATION
  Report Type: Spontaneous
  Country: US (occurrence: US)
  Receive Date: 20220203
  Receipt Date: 20220203
  Transmission Date: 20220423
  Serious: No
  Sender: FDA-Public Use
  Company Number: US-PERRIGO-21US004734

PATIENT
  Age: 2 Year
  Sex: Male
  Weight: 13.605 kg

DRUGS (2)
  1. IBUPROFEN [Suspect]
     Active Substance: IBUPROFEN
     Indication: Pyrexia
     Dosage: 100 MG, EVERY 6 HOURS
     Route: 048
     Dates: start: 20210402, end: 20210402
  2. IBUPROFEN [Suspect]
     Active Substance: IBUPROFEN
     Dosage: 200 TO 300 MG, SINGLE
     Route: 048
     Dates: start: 20210405, end: 20210405

REACTIONS (2)
  - Somnolence [Recovered/Resolved]
  - Accidental exposure to product [Recovered/Resolved]

NARRATIVE: CASE EVENT DATE: 20210405
